FAERS Safety Report 18522200 (Version 2)
Quarter: 2021Q1

REPORT INFORMATION
  Report Type: Spontaneous
  Country: US (occurrence: US)
  Receive Date: 20201119
  Receipt Date: 20210121
  Transmission Date: 20210419
  Serious: No
  Sender: FDA-Public Use
  Company Number: US-HORIZON-2020HZN01337

PATIENT
  Age: 71 Year
  Sex: Male

DRUGS (13)
  1. METHIMAZOLE. [Concomitant]
     Active Substance: METHIMAZOLE
  2. ZOLOFT [Concomitant]
     Active Substance: SERTRALINE HYDROCHLORIDE
     Dosage: 1.5 A DAY
  3. BUSPIRONE [Concomitant]
     Active Substance: BUSPIRONE HYDROCHLORIDE
     Dosage: 15MG 3X A DAY ; TIME INTERVAL:
  4. FLONASE [Concomitant]
     Active Substance: FLUTICASONE PROPIONATE
     Dosage: 2 CUPS TWICE PER DAY
  5. CALCIUM [Concomitant]
     Active Substance: CALCIUM
     Dosage: 1200 MG 1X DAILY
  6. HYDROCODONE [Concomitant]
     Active Substance: HYDROCODONE
     Dosage: 10/325 ? 3X A DAY AS NEEDED ; AS NECESSARY
  7. ALPRAZOLAM. [Concomitant]
     Active Substance: ALPRAZOLAM
     Dosage: 1MG ONCE AT NIGHT
  8. MATZIM [Concomitant]
     Active Substance: DILTIAZEM
     Dosage: 1MG ONCE AT NIGHT
  9. BRIMONIDINE [Concomitant]
     Active Substance: BRIMONIDINE TARTRATE
     Dosage: 2X DAILY
  10. TEPEZZA [Suspect]
     Active Substance: TEPROTUMUMAB-TRBW
     Indication: ENDOCRINE OPHTHALMOPATHY
     Dosage: 1726 MG EVERY 3 WEEKS
     Dates: start: 20200909
  11. VITAMIN D3 [Concomitant]
     Active Substance: CHOLECALCIFEROL
     Dosage: 5,000 UNITS 1X DAILY
  12. PANTOPRAZOLE [Concomitant]
     Active Substance: PANTOPRAZOLE
     Dosage: 40 MG 2X A DAY
  13. FLOVENT [Concomitant]
     Active Substance: FLUTICASONE PROPIONATE
     Dosage: 100 MCG 2 PUFFS 2X DAILY

REACTIONS (5)
  - Dizziness [Not Recovered/Not Resolved]
  - Muscle spasms [Not Recovered/Not Resolved]
  - Hypoglycaemia [Not Recovered/Not Resolved]
  - Myalgia [Not Recovered/Not Resolved]
  - Hypertension [Unknown]

NARRATIVE: CASE EVENT DATE: 202010
